FAERS Safety Report 25586699 (Version 1)
Quarter: 2025Q3

REPORT INFORMATION
  Report Type: Spontaneous
  Country: GB (occurrence: GB)
  Receive Date: 20250721
  Receipt Date: 20250721
  Transmission Date: 20251021
  Serious: Yes (Other)
  Sender: MYLAN
  Company Number: None

PATIENT
  Age: 80 Year
  Sex: Female
  Weight: 55 kg

DRUGS (10)
  1. RIFAMPIN [Suspect]
     Active Substance: RIFAMPIN
     Indication: Endocarditis
     Dosage: 40 MILLIGRAM, BID
     Dates: start: 20250520, end: 20250701
  2. RIVAROXABAN [Concomitant]
     Active Substance: RIVAROXABAN
  3. BISOPROLOL [Concomitant]
     Active Substance: BISOPROLOL
  4. PREGABALIN [Concomitant]
     Active Substance: PREGABALIN
  5. PROCHLORPERAZINE [Concomitant]
     Active Substance: PROCHLORPERAZINE
  6. TRAMADOL [Concomitant]
     Active Substance: TRAMADOL
  7. LOPERAMIDE [Concomitant]
     Active Substance: LOPERAMIDE
  8. ALBUTEROL [Concomitant]
     Active Substance: ALBUTEROL
  9. BECLOMETHASONE [Concomitant]
     Active Substance: BECLOMETHASONE
  10. CHLORPHENIRAMINE [Concomitant]
     Active Substance: CHLORPHENIRAMINE

REACTIONS (1)
  - Hyponatraemia [Recovered/Resolved]

NARRATIVE: CASE EVENT DATE: 20250520
